FAERS Safety Report 6679755-1 (Version None)
Quarter: 2010Q2

REPORT INFORMATION
  Report Type: 
  Country: None (occurrence: None)
  Receive Date: 20100409
  Receipt Date: 20100322
  Transmission Date: 20101027
  Serious: Yes (Hospitalization, Other)
  Sender: FDA-Public Use
  Company Number: AUR-APL-2010-00858

PATIENT
  Age: 38 Year
  Sex: Female

DRUGS (4)
  1. MINOCYCLINE HCL [Suspect]
     Indication: ACNE
  2. MONTELUKAST SODIUM [Concomitant]
  3. QUINAPRIL [Concomitant]
  4. HYDROCHLOROTHIAZIDE [Concomitant]

REACTIONS (32)
  - ALANINE AMINOTRANSFERASE INCREASED [None]
  - ASPARTATE AMINOTRANSFERASE INCREASED [None]
  - BLOOD CREATININE INCREASED [None]
  - BLOOD IMMUNOGLOBULIN E INCREASED [None]
  - BLOOD PRESSURE DECREASED [None]
  - BLOOD THYROID STIMULATING HORMONE DECREASED [None]
  - BLOOD UREA INCREASED [None]
  - CARDIAC FAILURE [None]
  - COMPLEMENT FACTOR DECREASED [None]
  - DYSPNOEA AT REST [None]
  - EJECTION FRACTION DECREASED [None]
  - EOSINOPHIL PERCENTAGE INCREASED [None]
  - HAEMATURIA [None]
  - HEART RATE INCREASED [None]
  - LABORATORY TEST ABNORMAL [None]
  - LEFT VENTRICULAR DYSFUNCTION [None]
  - LYMPHADENOPATHY [None]
  - MYOGLOBIN BLOOD INCREASED [None]
  - NECROSIS [None]
  - PARAKERATOSIS [None]
  - PERIORBITAL OEDEMA [None]
  - PETECHIAE [None]
  - PYREXIA [None]
  - RASH ERYTHEMATOUS [None]
  - RED BLOOD CELL SEDIMENTATION RATE INCREASED [None]
  - RENAL IMPAIRMENT [None]
  - SKIN EXFOLIATION [None]
  - SKIN OEDEMA [None]
  - THYROXINE FREE INCREASED [None]
  - TRI-IODOTHYRONINE FREE INCREASED [None]
  - TYPE 2 DIABETES MELLITUS [None]
  - WHITE BLOOD CELL COUNT INCREASED [None]
